FAERS Safety Report 6670651-2 (Version None)
Quarter: 2010Q2

REPORT INFORMATION
  Report Type: 
  Country: None (occurrence: None)
  Receive Date: 20100405
  Receipt Date: 20100326
  Transmission Date: 20101027
  Serious: Yes (Life-Threatening, Hospitalization)
  Sender: FDA-Public Use
  Company Number: WAES 0903USA03599

PATIENT
  Age: 15 Year
  Sex: Female
  Weight: 65.7716 kg

DRUGS (11)
  1. ISENTRESS [Suspect]
     Indication: HIV INFECTION
     Dosage: 400 MG/BID/PO
     Route: 048
     Dates: start: 20081124
  2. ETRAVIRINE [Suspect]
     Dates: start: 20081124
  3. DARUNAVIR UNK [Suspect]
     Dates: start: 20081124
  4. NORVIR [Suspect]
     Dates: start: 20070220
  5. TRUVADA [Suspect]
     Dates: start: 20081124
  6. BACTRIM [Concomitant]
  7. FLOVENT [Concomitant]
  8. ZITHROMAX [Concomitant]
  9. ALBUTEROL [Concomitant]
  10. FLUCONAZOLE [Concomitant]
  11. LEVALBUTEROL HCL [Concomitant]

REACTIONS (12)
  - BLOOD LACTATE DEHYDROGENASE INCREASED [None]
  - CHEST PAIN [None]
  - FLANK PAIN [None]
  - HAEMOGLOBIN DECREASED [None]
  - NEUROPATHY PERIPHERAL [None]
  - ORAL CANDIDIASIS [None]
  - PAIN IN EXTREMITY [None]
  - PLEURAL EFFUSION [None]
  - PNEUMONIA [None]
  - RHINORRHOEA [None]
  - SYNCOPE [None]
  - VIRAL INFECTION [None]
